FAERS Safety Report 8468077 (Version 8)
Quarter: 2012Q4

REPORT INFORMATION
  Report Type: 
  Country: US (occurrence: US)
  Receive Date: 20120320
  Receipt Date: 20121018
  Transmission Date: 20130627
  Serious: Yes (Hospitalization, Other)
  Sender: FDA-Public Use
  Company Number: US-009507513-1203USA01846

PATIENT

DRUGS (22)
  1. FOSAMAX [Suspect]
     Indication: OSTEOPOROSIS
     Dosage: 70 mg, QW
     Route: 048
     Dates: end: 201009
  2. FOSAMAX [Suspect]
     Dosage: 5 mg, qd
     Route: 048
     Dates: start: 19980713
  3. FOSAMAX [Suspect]
     Dosage: 35 mg, qd
     Route: 048
  4. FOSAMAX [Suspect]
     Dosage: 70 mg, UNK
     Route: 048
     Dates: start: 20071102
  5. FOSAMAX [Suspect]
     Dosage: 10 mg, qd
     Route: 048
     Dates: end: 20010330
  6. FOSAMAX [Suspect]
     Indication: OSTEOPOROSIS
     Dosage: 70 mg, UNK
     Route: 048
     Dates: start: 20080212
  7. ALENDRONATE SODIUM [Suspect]
     Dosage: 70 mg, UNK
     Dates: start: 20080731
  8. PEPCID [Concomitant]
     Indication: GASTROOESOPHAGEAL REFLUX DISEASE
     Dosage: 20-40 qd
     Route: 048
  9. PREMARIN [Concomitant]
     Indication: HORMONE REPLACEMENT THERAPY
     Dates: start: 1980, end: 2010
  10. PRILOSEC [Concomitant]
     Indication: GASTROOESOPHAGEAL REFLUX DISEASE
     Dates: start: 1993, end: 1998
  11. PRILOSEC [Concomitant]
     Indication: BARRETT^S OESOPHAGUS
  12. ESTRATEST [Concomitant]
     Dosage: 1.25/2.5 mg qd
     Dates: start: 1983, end: 200904
  13. CLIMARA [Concomitant]
     Indication: MENOPAUSE
  14. ZESTRIL [Concomitant]
     Indication: HYPERTENSION
     Dosage: 10 mg, qd
  15. ALLERGENIC EXTRACT [Concomitant]
     Indication: RHINITIS SEASONAL
     Dosage: UNK, qw
  16. FLOVENT [Concomitant]
     Indication: RHINITIS SEASONAL
     Dosage: 110 Microgram, 2 puffs bid prn
     Route: 055
  17. FLONASE [Concomitant]
     Indication: RHINITIS SEASONAL
     Dosage: 2 sprays each nostril qd
     Route: 045
  18. CLARITIN [Concomitant]
     Indication: RHINITIS SEASONAL
     Dosage: 10 mg, qd
     Route: 048
  19. DIOVAN [Concomitant]
     Indication: HYPERTENSION
     Dosage: 160 mg, qd
  20. VERELAN [Concomitant]
     Indication: HYPERTENSION
  21. CLARINEX [Concomitant]
     Indication: RHINITIS SEASONAL
     Dosage: 5 mg, prn
     Route: 048
  22. DIOVAN HCT [Concomitant]
     Indication: HYPERTENSION

REACTIONS (75)
  - Femur fracture [Unknown]
  - Closed fracture manipulation [Unknown]
  - Fall [Unknown]
  - Shoulder operation [Unknown]
  - Oesophagogastric fundoplasty [Unknown]
  - Benign breast lump removal [Unknown]
  - Hypoacusis [Unknown]
  - Rotator cuff repair [Unknown]
  - Hypovolaemia [Unknown]
  - Appendicectomy [Unknown]
  - Abdominal adhesions [Unknown]
  - Gastrooesophageal reflux disease [Recovering/Resolving]
  - Depression [Unknown]
  - Anxiety [Unknown]
  - Emotional distress [Unknown]
  - Quality of life decreased [Unknown]
  - Asthma [Unknown]
  - Weight decreased [Unknown]
  - Stress urinary incontinence [Unknown]
  - Osteoarthritis [Unknown]
  - Hypercholesterolaemia [Unknown]
  - Autonomic nervous system imbalance [Unknown]
  - Osteopenia [Unknown]
  - Atrophic vulvovaginitis [Unknown]
  - Dermal cyst [Unknown]
  - Vulvovaginal pruritus [Unknown]
  - Hiatus hernia [Unknown]
  - Migraine [Unknown]
  - Muscle strain [Unknown]
  - Breast mass [Unknown]
  - Chest pain [Unknown]
  - Hot flush [Unknown]
  - Arrhythmia [Unknown]
  - Mitral valve incompetence [Unknown]
  - Tricuspid valve incompetence [Unknown]
  - Extrasystoles [Unknown]
  - Alopecia areata [Unknown]
  - Stress [Unknown]
  - Loss of libido [Unknown]
  - Dry mouth [Unknown]
  - Drug intolerance [Unknown]
  - Meniere^s disease [Unknown]
  - Tinnitus [Not Recovered/Not Resolved]
  - Intervertebral disc degeneration [Unknown]
  - Pain [Not Recovered/Not Resolved]
  - Intervertebral disc displacement [Unknown]
  - Somnolence [Unknown]
  - Erythema infectiosum [Unknown]
  - Rosacea [Unknown]
  - Dermatitis contact [Recovered/Resolved]
  - Basilar artery stenosis [Unknown]
  - Gastritis erosive [Unknown]
  - Spinal osteoarthritis [Unknown]
  - Rotator cuff syndrome [Unknown]
  - Rotator cuff syndrome [Unknown]
  - Fatigue [Unknown]
  - Asthma [Unknown]
  - Appendicitis [Unknown]
  - Hypotension [Unknown]
  - Tachycardia [Unknown]
  - Mass [Unknown]
  - Intervertebral disc protrusion [Unknown]
  - Gastritis [Unknown]
  - Dysphagia [Unknown]
  - Pain in extremity [Unknown]
  - Back pain [Unknown]
  - Oesophagitis [Recovering/Resolving]
  - Drug ineffective [Unknown]
  - Headache [Unknown]
  - Erythema [Unknown]
  - Gastric ulcer [Unknown]
  - Drug effect decreased [Unknown]
  - Erosive oesophagitis [Unknown]
  - Myalgia [Unknown]
  - Muscle spasms [Unknown]
